FAERS Safety Report 25040786 (Version 1)
Quarter: 2025Q1

REPORT INFORMATION
  Report Type: Spontaneous
  Country: US (occurrence: None)
  Receive Date: 20250305
  Receipt Date: 20250305
  Transmission Date: 20250409
  Serious: Yes (Hospitalization)
  Sender: FDA-CTU
  Company Number: None

PATIENT
  Age: 79 Year
  Sex: Male
  Weight: 80.1 kg

DRUGS (2)
  1. CARBOPLATIN [Suspect]
     Active Substance: CARBOPLATIN
     Dates: end: 20210802
  2. TAXOL [Suspect]
     Active Substance: PACLITAXEL
     Dates: end: 20210802

REACTIONS (4)
  - Anaemia [None]
  - Hypoxia [None]
  - Acidosis [None]
  - Aphasia [None]

NARRATIVE: CASE EVENT DATE: 20210924
